FAERS Safety Report 13817296 (Version 1)
Quarter: 2017Q3

REPORT INFORMATION
  Report Type: Spontaneous
  Country: US (occurrence: US)
  Receive Date: 20170731
  Receipt Date: 20170731
  Transmission Date: 20171127
  Serious: No
  Sender: FDA-Public Use
  Company Number: US-ASTRAZENECA-2017SE76369

PATIENT
  Age: 67 Year
  Sex: Female
  Weight: 39.9 kg

DRUGS (1)
  1. TUDORZA PRESSAIR [Suspect]
     Active Substance: ACLIDINIUM BROMIDE
     Indication: CHRONIC OBSTRUCTIVE PULMONARY DISEASE
     Dosage: 1 PUFF TWO TIMES A DAY
     Route: 055
     Dates: start: 2010

REACTIONS (2)
  - Product quality issue [Unknown]
  - Dementia [Unknown]

NARRATIVE: CASE EVENT DATE: 2015
